FAERS Safety Report 13243966 (Version 1)
Quarter: 2017Q1

REPORT INFORMATION
  Report Type: Spontaneous
  Country: US (occurrence: US)
  Receive Date: 20170217
  Receipt Date: 20170217
  Transmission Date: 20170428
  Serious: No
  Sender: FDA-Public Use
  Company Number: US-PURDUE-USA-2016-0132823

PATIENT
  Sex: Female

DRUGS (2)
  1. MS CONTIN [Suspect]
     Active Substance: MORPHINE SULFATE
     Indication: NEURALGIA
     Dosage: 30 MG, BID
     Route: 048
     Dates: start: 2015
  2. MS CONTIN [Suspect]
     Active Substance: MORPHINE SULFATE
     Indication: PAIN

REACTIONS (7)
  - Somnolence [Unknown]
  - Depressed level of consciousness [Unknown]
  - Fatigue [Unknown]
  - Mood swings [Unknown]
  - Coordination abnormal [Unknown]
  - Dysarthria [Unknown]
  - Constipation [Unknown]
